FAERS Safety Report 4931938-4 (Version None)
Quarter: 2006Q1

REPORT INFORMATION
  Report Type: 
  Country: None (occurrence: None)
  Receive Date: 20060303
  Receipt Date: 20030605
  Transmission Date: 20060701
  Serious: Yes (Hospitalization, Disabling)
  Sender: FDA-Public Use
  Company Number: US-MERCK-0306USA00851

PATIENT
  Sex: Female
  Weight: 94 kg

DRUGS (3)
  1. VIOXX [Suspect]
     Indication: BACK PAIN
     Route: 048
     Dates: start: 19990101, end: 20010101
  2. RISPERDAL [Concomitant]
     Route: 065
  3. XANAX [Concomitant]
     Route: 065

REACTIONS (11)
  - ADVERSE EVENT [None]
  - ANXIETY [None]
  - CHEST PAIN [None]
  - DEPRESSION [None]
  - DIZZINESS [None]
  - DYSPNOEA [None]
  - HEADACHE [None]
  - HYPERTENSION [None]
  - PANIC DISORDER [None]
  - PNEUMONIA [None]
  - SWELLING [None]
